FAERS Safety Report 9507166 (Version 1)
Quarter: 2013Q1

REPORT INFORMATION
  Report Type: Spontaneous
  Country: US (occurrence: None)
  Receive Date: 20130305
  Receipt Date: 20130305
  Transmission Date: 20140127
  Serious: Yes (Other)
  Sender: FDA-Public Use
  Company Number: 163-21880-12052700

PATIENT
  Age: 74 Year
  Sex: Male
  Weight: 70.31 kg

DRUGS (1)
  1. REVLIMID [Suspect]
     Indication: PLASMA CELL MYELOMA
     Dosage: 10 MG, DAILY X 28 DAYS, PO
     Route: 048
     Dates: start: 201201

REACTIONS (2)
  - Hypoaesthesia [None]
  - Gait disturbance [None]
